FAERS Safety Report 20564323 (Version 1)
Quarter: 2022Q1

REPORT INFORMATION
  Report Type: Spontaneous
  Country: US (occurrence: US)
  Receive Date: 20220308
  Receipt Date: 20220308
  Transmission Date: 20220423
  Serious: No
  Sender: FDA-Public Use
  Company Number: US-JNJFOC-20220240211

PATIENT
  Sex: Male

DRUGS (1)
  1. SUDAFED [Suspect]
     Active Substance: PSEUDOEPHEDRINE HYDROCHLORIDE
     Indication: Exposure via inhalation
     Dosage: INHALED SOME FUMES FROM IT
     Route: 055

REACTIONS (3)
  - Aggression [Unknown]
  - Abnormal behaviour [Unknown]
  - Exposure via inhalation [Unknown]
